FAERS Safety Report 6738069-1 (Version None)
Quarter: 2010Q2

REPORT INFORMATION
  Report Type: 
  Country: None (occurrence: None)
  Receive Date: 20100521
  Receipt Date: 20100505
  Transmission Date: 20101027
  Serious: Yes (Hospitalization)
  Sender: FDA-Public Use
  Company Number: 2010RR-33739

PATIENT
  Age: 26 Year
  Sex: Female

DRUGS (6)
  1. LORAZEPAM [Suspect]
     Dosage: 1.5 MG/DAY
  2. AMISULPRIDE (AMISULPRIDE) [Suspect]
     Dosage: 240-400 MG/DAY
     Dates: start: 20050101
  3. QUETIAPINE [Suspect]
     Dosage: LESS THAN OR EQUAL TO 200MG/DAY
  4. ARIPIPRAZOLE [Suspect]
     Dosage: LESS THAN OR EQUAL TO 10MG/DAY
  5. CLOZAPINE [Suspect]
     Dosage: LESS THAN OR EQUAL TO 50MG/DAY
  6. BIPERIDEN HYDROCHLORIDE TAB [Suspect]
     Dosage: 1.5MG/DAY

REACTIONS (9)
  - ANXIETY [None]
  - CONDITION AGGRAVATED [None]
  - DYSPHAGIA [None]
  - DYSPHONIA [None]
  - MYASTHENIA GRAVIS [None]
  - PSYCHOTIC DISORDER [None]
  - RESPIRATORY FAILURE [None]
  - SALIVARY HYPERSECRETION [None]
  - TARDIVE DYSKINESIA [None]
